FAERS Safety Report 21934319 (Version 1)
Quarter: 2023Q1

REPORT INFORMATION
  Report Type: Spontaneous
  Country: IN (occurrence: IN)
  Receive Date: 20230201
  Receipt Date: 20230201
  Transmission Date: 20230417
  Serious: Yes (Other)
  Sender: FDA-Public Use
  Company Number: IN-WOCKHARDT BIO AG-2023WBA000019

PATIENT
  Age: 70 Year
  Sex: Female

DRUGS (1)
  1. PANTOPRAZOLE SODIUM [Suspect]
     Active Substance: PANTOPRAZOLE SODIUM
     Indication: Gastritis
     Dosage: 40 MILLIGRAM DAILY
     Route: 048

REACTIONS (3)
  - Tubulointerstitial nephritis [Recovering/Resolving]
  - Neuropathy peripheral [Recovering/Resolving]
  - Product use in unapproved indication [Unknown]
